FAERS Safety Report 14028472 (Version 1)
Quarter: 2017Q3

REPORT INFORMATION
  Report Type: Not Available
  Country: US (occurrence: US)
  Receive Date: 20170930
  Receipt Date: 20170930
  Transmission Date: 20171128
  Serious: No
  Sender: FDA-Public Use
  Company Number: US-NEUROCRINE BIOSCIENCES INC.-2017NBI00703

PATIENT
  Age: 51 Year
  Sex: Female

DRUGS (12)
  1. ATORVASTATIN [Concomitant]
     Active Substance: ATORVASTATIN
  2. LEVOTHYROXINE. [Concomitant]
     Active Substance: LEVOTHYROXINE
  3. LAMICTAL [Concomitant]
     Active Substance: LAMOTRIGINE
  4. NEFAZODONE [Concomitant]
     Active Substance: NEFAZODONE
  5. OMEPRAZOLE. [Concomitant]
     Active Substance: OMEPRAZOLE
  6. MELOXICAM. [Concomitant]
     Active Substance: MELOXICAM
  7. DARIFENACIN. [Concomitant]
     Active Substance: DARIFENACIN
  8. ESTRADIOL. [Concomitant]
     Active Substance: ESTRADIOL
  9. ESZOPICLONE. [Concomitant]
     Active Substance: ESZOPICLONE
  10. LYRICA [Concomitant]
     Active Substance: PREGABALIN
  11. INGREZZA [Suspect]
     Active Substance: VALBENAZINE
     Indication: PRODUCT USED FOR UNKNOWN INDICATION
     Route: 048
     Dates: start: 20170619
  12. LITHIUM. [Concomitant]
     Active Substance: LITHIUM

REACTIONS (1)
  - Fatigue [Not Recovered/Not Resolved]

NARRATIVE: CASE EVENT DATE: 20170630
